FAERS Safety Report 8189214-5 (Version None)
Quarter: 2012Q1

REPORT INFORMATION
  Report Type: 
  Country: None (occurrence: None)
  Receive Date: 20120306
  Receipt Date: 20120306
  Transmission Date: 20120608
  Serious: Yes (Hospitalization)
  Sender: FDA-Public Use
  Company Number: None

PATIENT
  Age: 73 Year
  Sex: Female
  Weight: 57.6068 kg

DRUGS (7)
  1. LISINOPRIL [Concomitant]
  2. EFFEXOR [Concomitant]
  3. RAD001 (EVEROLIMUS 5MG), NOVARTIS [Suspect]
     Indication: BREAST CANCER METASTATIC
     Dosage: 10 MG PO QD
     Route: 048
     Dates: start: 20120208
  4. FASLODEX [Suspect]
     Indication: BREAST CANCER METASTATIC
     Dosage: 250 MG IM
     Route: 030
     Dates: start: 20120208
  5. HYDROXIZINE HCI [Concomitant]
  6. LORATADINE [Concomitant]
  7. ZOLPIDEM [Concomitant]

REACTIONS (2)
  - PNEUMONIA BACTERIAL [None]
  - LOBAR PNEUMONIA [None]
